FAERS Safety Report 11221059 (Version 1)
Quarter: 2015Q2

REPORT INFORMATION
  Report Type: Spontaneous
  Country: US (occurrence: None)
  Receive Date: 20150625
  Receipt Date: 20150625
  Transmission Date: 20150821
  Serious: Yes (Life-Threatening)
  Sender: FDA-Public Use
  Company Number: None

PATIENT
  Age: 47 Year
  Sex: Female
  Weight: 72.58 kg

DRUGS (1)
  1. ARMOUR THYROID [Suspect]
     Active Substance: THYROID, PORCINE\THYROID, UNSPECIFIED
     Indication: THYROIDECTOMY
     Dosage: 105 ONCE DAILY TAKEN BY MOUTH
     Route: 048

REACTIONS (4)
  - Fatigue [None]
  - Feeling abnormal [None]
  - Thyroid hormones decreased [None]
  - Thyroid hormones increased [None]

NARRATIVE: CASE EVENT DATE: 20140830
